FAERS Safety Report 21930365 (Version 2)
Quarter: 2023Q2

REPORT INFORMATION
  Report Type: Report from Study
  Country: US (occurrence: US)
  Receive Date: 20230131
  Receipt Date: 20230408
  Transmission Date: 20230722
  Serious: Yes (Other)
  Sender: FDA-Public Use
  Company Number: US-002147023-NVSC2023US017193

PATIENT
  Age: 66 Year
  Sex: Male

DRUGS (4)
  1. KYMRIAH [Suspect]
     Active Substance: TISAGENLECLEUCEL
     Indication: Diffuse large B-cell lymphoma
     Dosage: UNK, ONCE/SINGLE (DOSE: 448917067)
     Route: 042
     Dates: start: 20210122
  2. ACETAMINOPHEN [Concomitant]
     Active Substance: ACETAMINOPHEN
     Indication: General physical health deterioration
     Dosage: 650 UNK
     Route: 048
     Dates: start: 20210122, end: 20210122
  3. LEVETIRACETAM [Concomitant]
     Active Substance: LEVETIRACETAM
     Indication: General physical health deterioration
     Dosage: 750 UNK
     Route: 048
     Dates: start: 20210407, end: 20210407
  4. CEFAZOLIN [Concomitant]
     Active Substance: CEFAZOLIN
     Indication: General physical health deterioration
     Dosage: 1 UNK
     Route: 042
     Dates: start: 20210407, end: 20210407

REACTIONS (25)
  - Anaemia [Recovered/Resolved]
  - Anaemia [Recovered/Resolved]
  - Lymphocyte count decreased [Recovered/Resolved]
  - Lymphocyte count decreased [Recovered/Resolved]
  - Lymphocyte count decreased [Recovered/Resolved]
  - Lymphocyte count decreased [Recovered/Resolved]
  - Lymphocyte count decreased [Recovered/Resolved]
  - Lymphocyte count decreased [Not Recovered/Not Resolved]
  - White blood cell count decreased [Recovered/Resolved]
  - White blood cell count decreased [Recovered/Resolved]
  - Platelet count decreased [Recovered/Resolved]
  - Platelet count decreased [Recovered/Resolved]
  - Blood alkaline phosphatase increased [Recovered/Resolved]
  - Neutrophil count decreased [Recovered/Resolved]
  - Neutrophil count decreased [Recovered/Resolved]
  - Neutrophil count decreased [Recovered/Resolved]
  - Neutrophil count decreased [Recovered/Resolved]
  - Neutrophil count decreased [Recovered/Resolved]
  - Chills [Recovered/Resolved]
  - Fatigue [Recovered/Resolved]
  - Aspartate aminotransferase increased [Recovered/Resolved]
  - Hypocalcaemia [Recovered/Resolved]
  - Hypocalcaemia [Recovered/Resolved]
  - Hypocalcaemia [Recovered/Resolved]
  - Hypocalcaemia [Recovered/Resolved]

NARRATIVE: CASE EVENT DATE: 20210122
